FAERS Safety Report 10397643 (Version 1)
Quarter: 2014Q3

REPORT INFORMATION
  Report Type: Spontaneous
  Country: US (occurrence: US)
  Receive Date: 20140821
  Receipt Date: 20140821
  Transmission Date: 20150326
  Serious: No
  Sender: FDA-Public Use
  Company Number: 2013SP007882

PATIENT
  Age: 67 Year
  Sex: Female
  Weight: 68.03 kg

DRUGS (3)
  1. VFEND [Suspect]
     Active Substance: VORICONAZOLE
     Dates: start: 20131012, end: 20131031
  2. DIPHENHYDRAMINE HYDROCHLORIDE. [Suspect]
     Active Substance: DIPHENHYDRAMINE HYDROCHLORIDE
     Indication: URTICARIA
     Route: 042
     Dates: start: 2013
  3. FAMOTIDINE. [Suspect]
     Active Substance: FAMOTIDINE
     Indication: URTICARIA
     Dates: start: 2013

REACTIONS (5)
  - Chest pain [Not Recovered/Not Resolved]
  - Swelling face [Not Recovered/Not Resolved]
  - Lip swelling [Not Recovered/Not Resolved]
  - Drug ineffective [Unknown]
  - Urticaria [Not Recovered/Not Resolved]

NARRATIVE: CASE EVENT DATE: 2013
